FAERS Safety Report 7087255-2 (Version None)
Quarter: 2010Q4

REPORT INFORMATION
  Report Type: 
  Country: None (occurrence: None)
  Receive Date: 20101107
  Receipt Date: 20101028
  Transmission Date: 20110411
  Serious: Yes (Other)
  Sender: FDA-Public Use
  Company Number: SG-BRISTOL-MYERS SQUIBB COMPANY-15348154

PATIENT
  Age: 57 Year
  Sex: Male

DRUGS (2)
  1. BARACLUDE [Suspect]
     Dosage: INTERRUPTED FOR 6 MONTHS AND RESTARTED
  2. VIAGRA [Interacting]

REACTIONS (1)
  - DRUG INTERACTION [None]
